FAERS Safety Report 6913104-6 (Version None)
Quarter: 2010Q3

REPORT INFORMATION
  Report Type: 
  Country: None (occurrence: None)
  Receive Date: 20100806
  Receipt Date: 20090729
  Transmission Date: 20110219
  Serious: No
  Sender: FDA-Public Use
  Company Number: US-PFIZER INC-2009216953

PATIENT
  Age: 70 Year
  Sex: Female

DRUGS (2)
  1. DETROL LA [Suspect]
     Indication: URINARY INCONTINENCE
     Dosage: 4 MG, 1X/DAY
     Dates: end: 20090101
  2. DARIFENACIN HYDROBROMIDE [Suspect]
     Indication: URINARY INCONTINENCE
     Dosage: UNK
     Dates: start: 20090101, end: 20090101

REACTIONS (2)
  - DRUG INEFFECTIVE [None]
  - DRY MOUTH [None]
